FAERS Safety Report 8353396-2 (Version None)
Quarter: 2012Q2

REPORT INFORMATION
  Report Type: 
  Country: None (occurrence: None)
  Receive Date: 20120511
  Receipt Date: 20120507
  Transmission Date: 20120825
  Serious: No
  Sender: FDA-Public Use
  Company Number: US-PFIZER INC-2012105340

PATIENT
  Sex: Female
  Weight: 76.19 kg

DRUGS (3)
  1. TIMOLOL [Concomitant]
     Dosage: UNKNOWN DOSE, TWICE DAILY
  2. XALATAN [Suspect]
     Indication: GLAUCOMA
     Dosage: UNKNOWN DOSE ONCE DAILY
     Route: 047
  3. DORZOLAMIDE [Concomitant]
     Dosage: UNK

REACTIONS (1)
  - INTRAOCULAR PRESSURE INCREASED [None]
